FAERS Safety Report 4852992-4 (Version None)
Quarter: 2005Q4

REPORT INFORMATION
  Report Type: 
  Country: None (occurrence: None)
  Receive Date: 20051214
  Receipt Date: 20051207
  Transmission Date: 20060501
  Serious: Yes (Other)
  Sender: FDA-Public Use
  Company Number: US-SANOFI-SYNTHELABO-A03200504070

PATIENT
  Sex: Male
  Weight: 83 kg

DRUGS (4)
  1. OXALIPLATIN [Suspect]
     Indication: COLON CANCER STAGE III
     Route: 042
     Dates: start: 20051031, end: 20051031
  2. FLUOROURACIL [Suspect]
     Indication: COLON CANCER STAGE III
     Dosage: 840MG BOLUS FOLLOWED BY 5040MG INFUSION EVERY 2 WEEKS
     Route: 042
     Dates: start: 20051031, end: 20051031
  3. LEUCOVORIN CALCIUM [Suspect]
     Indication: COLON CANCER STAGE III
     Route: 042
     Dates: start: 20051031, end: 20051031
  4. ENALAPRIL [Concomitant]
     Dosage: UNK
     Route: 048

REACTIONS (1)
  - VOCAL CORD PARALYSIS [None]
